FAERS Safety Report 5297413-5 (Version None)
Quarter: 2007Q2

REPORT INFORMATION
  Report Type: 
  Country: None (occurrence: None)
  Receive Date: 20070409
  Receipt Date: 20070326
  Transmission Date: 20071010
  Serious: Yes (Death)
  Sender: FDA-Public Use
  Company Number: 2007SP005592

PATIENT
  Age: 42 Year
  Sex: Male

DRUGS (4)
  1. PEG-INTRON [Suspect]
     Indication: HEPATITIS C VIRUS
     Dosage: 100 MCG;
     Dates: start: 20060601, end: 20061027
  2. PEG-INTRON [Suspect]
     Indication: LIVER DISORDER
     Dosage: 100 MCG;
     Dates: start: 20060601, end: 20061027
  3. RIBAVIRIN [Suspect]
     Indication: HEPATITIS C VIRUS
     Dosage: 1000 UNK; ; PO
     Route: 048
     Dates: start: 20060601, end: 20061001
  4. RIBAVIRIN [Suspect]
     Indication: LIVER DISORDER
     Dosage: 1000 UNK; ; PO
     Route: 048
     Dates: start: 20060601, end: 20061001

REACTIONS (1)
  - THROMBOTIC THROMBOCYTOPENIC PURPURA [None]
